FAERS Safety Report 9078185 (Version 1)
Quarter: 2013Q1

REPORT INFORMATION
  Report Type: Report from Study
  Country: US (occurrence: US)
  Receive Date: 20130130
  Receipt Date: 20130130
  Transmission Date: 20140127
  Serious: No
  Sender: FDA-Public Use
  Company Number: US-ABBOTT-12P-163-0959215-00

PATIENT
  Age: 63 Year
  Sex: Male

DRUGS (7)
  1. HUMIRA 40 MG/0.8 ML PEN [Suspect]
     Indication: RHEUMATOID ARTHRITIS
     Dates: start: 20120707
  2. METHOTREXATE [Concomitant]
     Indication: PRODUCT USED FOR UNKNOWN INDICATION
  3. FOLIC ACID [Concomitant]
     Indication: PRODUCT USED FOR UNKNOWN INDICATION
  4. OMEPRAZOLE [Concomitant]
     Indication: GASTROOESOPHAGEAL REFLUX DISEASE
  5. DILTIAZEM [Concomitant]
     Indication: BLOOD PRESSURE
  6. TRIAMTERENE [Concomitant]
     Indication: BLOOD PRESSURE
  7. MELOXICAM [Concomitant]
     Indication: PAIN

REACTIONS (2)
  - Wrong technique in drug usage process [Recovered/Resolved]
  - Incorrect dose administered [Recovered/Resolved]
